FAERS Safety Report 8241854-0 (Version None)
Quarter: 2012Q1

REPORT INFORMATION
  Report Type: 
  Country: None (occurrence: None)
  Receive Date: 20120328
  Receipt Date: 20120314
  Transmission Date: 20120608
  Serious: Yes (Death, Life-Threatening, Hospitalization, Other)
  Sender: FDA-Public Use
  Company Number: US-MYLANLABS-2012S1006290

PATIENT
  Sex: Female
  Weight: 86.18 kg

DRUGS (36)
  1. VERAPAMIL [Concomitant]
  2. GAVISCON [Concomitant]
  3. AMBIEN [Concomitant]
  4. LEVAQUIN [Concomitant]
  5. TEMAZEPAM [Concomitant]
  6. DEMEROL [Concomitant]
  7. MULTI-VITAMIN [Concomitant]
  8. ASCORBIC ACID [Concomitant]
  9. XOPENEX [Concomitant]
  10. SUCRALFATE [Concomitant]
  11. DIGOXIN [Suspect]
     Route: 048
     Dates: start: 20000307, end: 20080422
  12. ZOSYN [Concomitant]
  13. FLAGYL [Concomitant]
  14. VITAMIN E [Concomitant]
  15. VALIUM [Concomitant]
  16. MAGNESIUM HYDROXIDE TAB [Concomitant]
  17. SODIUM BICARBONATE [Concomitant]
  18. CLONIDINE [Concomitant]
  19. LOVENOX [Concomitant]
  20. NITROGLYCERIN [Concomitant]
  21. CALAN [Concomitant]
  22. DISOPYRAMIDE [Concomitant]
  23. PROTONIX [Concomitant]
  24. LOPRESSOR [Concomitant]
  25. NORVASC [Concomitant]
  26. NORPACE [Concomitant]
  27. LOTENSIN [Concomitant]
  28. ASPIRIN [Concomitant]
  29. PULMICORT [Concomitant]
  30. ALBUTEROL [Concomitant]
  31. DILTIAZEM HCL [Concomitant]
  32. LABETALOL HCL [Concomitant]
  33. METRONIDAZOLE [Concomitant]
  34. CARAFATE [Concomitant]
  35. ZOCOR [Concomitant]
  36. ASPIRIN [Concomitant]

REACTIONS (65)
  - ILEUS [None]
  - COUGH [None]
  - GASTROOESOPHAGEAL REFLUX DISEASE [None]
  - WEIGHT DECREASED [None]
  - SEPSIS [None]
  - ILEAL GANGRENE [None]
  - MULTI-ORGAN FAILURE [None]
  - OROPHARYNGEAL PAIN [None]
  - FATIGUE [None]
  - IRRITABLE BOWEL SYNDROME [None]
  - RENAL CYST [None]
  - OEDEMA PERIPHERAL [None]
  - ISCHAEMIA [None]
  - NAUSEA [None]
  - RENAL FAILURE [None]
  - ENDOTRACHEAL INTUBATION [None]
  - HAEMORRHOIDS [None]
  - LABORATORY TEST ABNORMAL [None]
  - ARTERIAL REPAIR [None]
  - CONSTIPATION [None]
  - ABDOMINAL DISCOMFORT [None]
  - ABDOMINAL PAIN [None]
  - CAROTID BRUIT [None]
  - HAEMATOMA [None]
  - OESOPHAGITIS [None]
  - GASTROINTESTINAL NECROSIS [None]
  - INFARCTION [None]
  - BREATH SOUNDS ABNORMAL [None]
  - DIVERTICULUM [None]
  - FLATULENCE [None]
  - ABDOMINAL PAIN UPPER [None]
  - VOMITING [None]
  - CORONARY ARTERY DISEASE [None]
  - STENT PLACEMENT [None]
  - DYSPEPSIA [None]
  - CHEST PAIN [None]
  - RESPIRATORY FAILURE [None]
  - PERIPHERAL VASCULAR DISORDER [None]
  - DEATH [None]
  - DIVERTICULITIS [None]
  - NASAL CONGESTION [None]
  - ARTERIOSCLEROSIS [None]
  - CYSTITIS [None]
  - DYSPNOEA [None]
  - ABDOMINAL DISTENSION [None]
  - DIARRHOEA [None]
  - EARLY SATIETY [None]
  - EPIGASTRIC DISCOMFORT [None]
  - CARDIAC FAILURE [None]
  - OLIGURIA [None]
  - ASTHENIA [None]
  - METABOLIC ACIDOSIS [None]
  - RENAL DISORDER [None]
  - CAROTID ARTERY STENOSIS [None]
  - LEUKOCYTOSIS [None]
  - ATRIAL FIBRILLATION [None]
  - HYPERTENSION [None]
  - VENTRICULAR ARRHYTHMIA [None]
  - PALPITATIONS [None]
  - ADHESION [None]
  - CARDIAC MURMUR [None]
  - DYSLIPIDAEMIA [None]
  - DEHYDRATION [None]
  - SHOCK [None]
  - UNRESPONSIVE TO STIMULI [None]
